FAERS Safety Report 17027153 (Version 1)
Quarter: 2019Q4

REPORT INFORMATION
  Report Type: Spontaneous
  Country: US (occurrence: US)
  Receive Date: 20191113
  Receipt Date: 20191113
  Transmission Date: 20200122
  Serious: Yes (Other)
  Sender: FDA-Public Use
  Company Number: US-ASTRAZENECA-2019SF59988

PATIENT
  Age: 63 Year
  Sex: Female
  Weight: 74.8 kg

DRUGS (6)
  1. BYDUREON BCISE [Suspect]
     Active Substance: EXENATIDE
     Indication: TYPE 2 DIABETES MELLITUS
     Route: 058
     Dates: start: 201909
  2. LOSARTAN. [Concomitant]
     Active Substance: LOSARTAN
     Indication: BLOOD PRESSURE ABNORMAL
  3. VITAMIN B12 [Concomitant]
     Active Substance: CYANOCOBALAMIN
     Indication: BLOOD PRESSURE ABNORMAL
  4. ONGLYZA [Suspect]
     Active Substance: SAXAGLIPTIN HYDROCHLORIDE
     Indication: TYPE 2 DIABETES MELLITUS
     Route: 048
     Dates: start: 2010
  5. METFORMIN [Suspect]
     Active Substance: METFORMIN HYDROCHLORIDE
     Indication: TYPE 2 DIABETES MELLITUS
     Route: 065
     Dates: start: 2010
  6. CRESTOR [Suspect]
     Active Substance: ROSUVASTATIN CALCIUM
     Indication: BLOOD CHOLESTEROL ABNORMAL
     Route: 048

REACTIONS (24)
  - Lip dry [Unknown]
  - Eye infection [Unknown]
  - Movement disorder [Unknown]
  - Plantar fasciitis [Unknown]
  - Urinary tract infection [Recovered/Resolved]
  - Product dose omission [Unknown]
  - Dry mouth [Unknown]
  - Nerve injury [Unknown]
  - Diarrhoea [Unknown]
  - Nausea [Recovered/Resolved]
  - Chapped lips [Unknown]
  - Hair texture abnormal [Unknown]
  - Nail disorder [Unknown]
  - Epistaxis [Unknown]
  - Malaise [Unknown]
  - Somnolence [Unknown]
  - Hypersensitivity [Unknown]
  - Eyelid ptosis [Unknown]
  - Tinnitus [Unknown]
  - Sinus disorder [Unknown]
  - Asthenia [Unknown]
  - Visual impairment [Unknown]
  - Lip pain [Unknown]
  - Product availability issue [Unknown]

NARRATIVE: CASE EVENT DATE: 2015
